FAERS Safety Report 22244427 (Version 1)
Quarter: 2023Q2

REPORT INFORMATION
  Report Type: Spontaneous
  Country: US (occurrence: US)
  Receive Date: 20230424
  Receipt Date: 20230424
  Transmission Date: 20230721
  Serious: No
  Sender: FDA-Public Use
  Company Number: US-ELI_LILLY_AND_COMPANY-US202304011083

PATIENT
  Sex: Female

DRUGS (1)
  1. TALTZ [Suspect]
     Active Substance: IXEKIZUMAB
     Indication: Psoriasis
     Dosage: 80 MG, UNKNOWN
     Route: 065

REACTIONS (6)
  - Psoriasis [Unknown]
  - Fungal infection [Unknown]
  - Feeling cold [Unknown]
  - Abdominal pain lower [Unknown]
  - Chest discomfort [Unknown]
  - Nausea [Unknown]
